FAERS Safety Report 5008797-7 (Version None)
Quarter: 2006Q2

REPORT INFORMATION
  Report Type: 
  Country: None (occurrence: None)
  Receive Date: 20060523
  Receipt Date: 20060502
  Transmission Date: 20061013
  Serious: Yes (Death)
  Sender: FDA-Public Use
  Company Number: FR-SANOFI-SYNTHELABO-A02200601147

PATIENT
  Sex: Female
  Weight: 43 kg

DRUGS (9)
  1. AVASTIN [Suspect]
     Indication: COLON CANCER METASTATIC
     Route: 041
     Dates: start: 20060313, end: 20060313
  2. ELVORINE [Suspect]
     Indication: COLON CANCER METASTATIC
     Route: 041
     Dates: start: 20060313, end: 20060313
  3. ELOXATIN [Suspect]
     Indication: COLON CANCER METASTATIC
     Route: 041
     Dates: start: 20060313, end: 20060313
  4. FLUOROURACIL [Suspect]
     Indication: COLON CANCER METASTATIC
     Dosage: 450 MG ON 15 MINS THROUGH INTRAVENOUS DRIP THEN INFUSION OF 2,800 MG ON 48H THROUGH CONTINU IV
     Route: 041
     Dates: start: 20060313, end: 20060314
  5. ATARAX [Concomitant]
     Dosage: UNK
     Route: 065
  6. PLITICAN [Concomitant]
     Dosage: UNK
     Route: 065
  7. XANAX [Concomitant]
     Dosage: UNK
     Route: 048
  8. DEXAMETHASONE [Concomitant]
     Dosage: 8 MG
     Route: 065
  9. ZOPHREN [Concomitant]
     Dosage: 8 MG
     Route: 065

REACTIONS (3)
  - ABDOMINAL PAIN [None]
  - POST PROCEDURAL HAEMORRHAGE [None]
  - SUDDEN DEATH [None]
